FAERS Safety Report 7474127-4 (Version None)
Quarter: 2011Q2

REPORT INFORMATION
  Report Type: 
  Country: None (occurrence: None)
  Receive Date: 20110511
  Receipt Date: 20110420
  Transmission Date: 20111010
  Serious: Yes (Other)
  Sender: FDA-Public Use
  Company Number: CA-ELI_LILLY_AND_COMPANY-CA201104006841

PATIENT
  Age: 91 Year
  Sex: Female

DRUGS (14)
  1. COUMADIN [Concomitant]
     Dosage: 3 MG, 3/W
  2. VENTOLIN                                /SCH/ [Concomitant]
     Dosage: UNK
  3. FORTEO [Suspect]
     Indication: OSTEOPOROSIS
     Dosage: 20 UG, QD
     Route: 058
     Dates: start: 20041208, end: 20060601
  4. K-DUR [Concomitant]
     Dosage: 20 MEQ, UNK
  5. PRESERVISION LUTEIN EYE VITA.+MIN.SUP.SOFTG. [Concomitant]
  6. LASIX [Concomitant]
     Dosage: 20 MG, UNK
  7. COUMADIN [Concomitant]
     Dosage: 4 MG, 4/W
  8. VITAMIN D [Concomitant]
     Dosage: 1800 IU, UNK
  9. FORTEO [Suspect]
     Dosage: 20 UG, QD
     Route: 058
     Dates: start: 20110420
  10. FOLIC ACID [Concomitant]
     Dosage: 1 MG, UNK
  11. PRILOSEC [Concomitant]
     Dosage: 20 MG, UNK
  12. LEVOTHROID [Concomitant]
     Dosage: .75 MG, UNK
  13. VITAMIN B-12 [Concomitant]
     Dosage: 1000 UG, UNK
  14. PULMICORT [Concomitant]
     Dosage: 0.25 %, UNK

REACTIONS (3)
  - MUSCLE SPASMS [None]
  - AORTIC VALVE REPLACEMENT [None]
  - TRACHEOSTOMY [None]
